FAERS Safety Report 20663741 (Version 7)
Quarter: 2022Q2

REPORT INFORMATION
  Report Type: Report from Study
  Country: US (occurrence: US)
  Receive Date: 20220401
  Receipt Date: 20220609
  Transmission Date: 20220721
  Serious: Yes (Hospitalization)
  Sender: FDA-Public Use
  Company Number: US-NOVARTISPH-NVSC2022US072895

PATIENT
  Sex: Female
  Weight: 48.526 kg

DRUGS (4)
  1. TREPROSTINIL [Suspect]
     Active Substance: TREPROSTINIL
     Indication: Pulmonary arterial hypertension
     Dosage: 26 NG/KG/MIN, CONT
     Route: 042
     Dates: start: 20220308
  2. TREPROSTINIL [Suspect]
     Active Substance: TREPROSTINIL
     Dosage: UNK (28 NG/KG/MIN), CONT
     Route: 065
  3. TREPROSTINIL [Suspect]
     Active Substance: TREPROSTINIL
     Dosage: DOSE INCREASED FROM 28 TO 40 NG/KG/MIN
     Route: 065
  4. TREPROSTINIL [Suspect]
     Active Substance: TREPROSTINIL
     Dosage: 40 NG/KG/MIN, CONT
     Route: 042

REACTIONS (14)
  - Pulmonary embolism [Unknown]
  - Oxygen saturation decreased [Unknown]
  - Back pain [Unknown]
  - Dyspnoea [Unknown]
  - Fatigue [Unknown]
  - Cardiac failure congestive [Unknown]
  - Incorrect dose administered [Unknown]
  - Pneumonia [Unknown]
  - Swelling [Unknown]
  - Taste disorder [Unknown]
  - Device issue [Unknown]
  - Sluggishness [Unknown]
  - Pain in jaw [Unknown]
  - Malaise [Unknown]
